FAERS Safety Report 10252043 (Version 1)
Quarter: 2014Q2

REPORT INFORMATION
  Report Type: Spontaneous
  Country: FR (occurrence: FR)
  Receive Date: 20140623
  Receipt Date: 20140623
  Transmission Date: 20141212
  Serious: Yes (Hospitalization)
  Sender: FDA-Public Use
  Company Number: PHHY2014FR076269

PATIENT
  Age: 62 Year
  Sex: Male

DRUGS (5)
  1. ZOMETA [Suspect]
     Dosage: 5 INJECTIONS, DAILY
     Dates: end: 201012
  2. ACLASTA [Suspect]
     Dosage: 3 INJECTIONS, DAILY
     Dates: end: 201012
  3. FOSAMAX [Suspect]
     Dosage: UNK UKN, UNK
     Route: 048
     Dates: end: 201012
  4. REMICADE [Concomitant]
     Dosage: UNK UKN, UNK
  5. METHOTREXATE [Concomitant]
     Dosage: UNK UKN, UNK

REACTIONS (1)
  - Osteonecrosis [Unknown]
